FAERS Safety Report 23936108 (Version 2)
Quarter: 2025Q4

REPORT INFORMATION
  Report Type: Spontaneous
  Country: EU (occurrence: EU)
  Receive Date: 20240604
  Receipt Date: 20251009
  Transmission Date: 20260118
  Serious: Yes (Hospitalization, Other)
  Sender: AUROBINDO
  Company Number: EU-MLMSERVICE-20240513-PI058711-00034-1

PATIENT
  Age: 73 Year
  Sex: Male

DRUGS (2)
  1. AMIODARONE [Suspect]
     Active Substance: AMIODARONE
     Indication: Atrial fibrillation
     Dosage: 200 MILLIGRAM (200 MG ID)
     Route: 065
  2. BISOPROLOL [Concomitant]
     Active Substance: BISOPROLOL
     Indication: Atrial fibrillation
     Dosage: 10 MILLIGRAM (10 MG ID  )
     Route: 065

REACTIONS (6)
  - Cognitive disorder [Recovering/Resolving]
  - Left ventricular hypertrophy [Recovering/Resolving]
  - Arrhythmia [Recovering/Resolving]
  - Psychomotor retardation [Recovering/Resolving]
  - Cardiac failure [Recovering/Resolving]
  - Hyperthyroidism [Recovering/Resolving]
